FAERS Safety Report 21441277 (Version 1)
Quarter: 2022Q4

REPORT INFORMATION
  Report Type: Spontaneous
  Country: US (occurrence: None)
  Receive Date: 20221010
  Receipt Date: 20221010
  Transmission Date: 20230113
  Serious: Yes (Other)
  Sender: FDA-Public Use
  Company Number: None

PATIENT
  Age: 88 Year
  Sex: Male
  Weight: 63.9 kg

DRUGS (6)
  1. REVLIMID [Suspect]
     Active Substance: LENALIDOMIDE
     Indication: Plasma cell myeloma
     Dosage: OTHER FREQUENCY : 1QD X14D, 7D OFF;?
     Route: 048
     Dates: start: 20220419
  2. ASPIRIN [Concomitant]
     Active Substance: ASPIRIN
  3. brilinta 60mg [Concomitant]
  4. decadron 12mg/week [Concomitant]
  5. SIMVASTATIN [Concomitant]
     Active Substance: SIMVASTATIN
  6. TRAZODONE [Concomitant]
     Active Substance: TRAZODONE HYDROCHLORIDE

REACTIONS (1)
  - Body temperature increased [None]

NARRATIVE: CASE EVENT DATE: 20221008
